FAERS Safety Report 5140314-3 (Version None)
Quarter: 2006Q4

REPORT INFORMATION
  Report Type: 
  Country: None (occurrence: None)
  Receive Date: 20061031
  Receipt Date: 20060927
  Transmission Date: 20070319
  Serious: Yes (Hospitalization)
  Sender: FDA-Public Use
  Company Number: DE-MERCK-0609DEU00094

PATIENT
  Age: 81 Year
  Sex: Female
  Weight: 62 kg

DRUGS (14)
  1. FOSAMAX [Suspect]
     Indication: SPONDYLOARTHROPATHY
     Route: 048
     Dates: start: 20060829, end: 20060912
  2. FOSAMAX [Suspect]
     Indication: CERVICOBRACHIAL SYNDROME
     Route: 048
     Dates: start: 20060829, end: 20060912
  3. CITALOPRAM [Concomitant]
     Indication: DEPRESSION
     Route: 048
  4. PANTOPRAZOLE SODIUM [Concomitant]
     Indication: GASTRITIS
     Route: 048
  5. TORSEMIDE [Concomitant]
     Indication: CARDIAC FAILURE CONGESTIVE
     Route: 048
  6. LISINOPRIL [Concomitant]
     Indication: HYPERTENSION
     Route: 048
  7. CALCIUM CARBONATE [Concomitant]
     Route: 048
  8. DIPYRONE [Concomitant]
     Indication: PAIN
     Route: 048
  9. DIPYRONE [Concomitant]
     Indication: CERVICOBRACHIAL SYNDROME
     Route: 048
  10. POLYETHYLENE GLYCOL [Concomitant]
     Indication: CONSTIPATION
     Route: 048
  11. BUPRENORPHINE [Concomitant]
     Indication: PAIN
     Route: 061
  12. BUPRENORPHINE [Concomitant]
     Indication: CERVICOBRACHIAL SYNDROME
     Route: 061
  13. HEPARIN [Concomitant]
     Route: 065
  14. XIPAMIDE [Concomitant]
     Indication: CARDIAC FAILURE CONGESTIVE
     Route: 048

REACTIONS (3)
  - EROSIVE OESOPHAGITIS [None]
  - LARYNGITIS [None]
  - OFF LABEL USE [None]
